FAERS Safety Report 7130238-4 (Version None)
Quarter: 2010Q4

REPORT INFORMATION
  Report Type: 
  Country: None (occurrence: None)
  Receive Date: 20101201
  Receipt Date: 20101118
  Transmission Date: 20110411
  Serious: Yes (Hospitalization, Other)
  Sender: FDA-Public Use
  Company Number: PHEH2009US00730

PATIENT
  Sex: Female

DRUGS (52)
  1. AREDIA [Suspect]
     Indication: MULTIPLE MYELOMA
     Dosage: UNK
     Route: 042
     Dates: start: 19990803, end: 19991130
  2. AREDIA [Suspect]
     Indication: LIGHT CHAIN ANALYSIS INCREASED
     Dosage: UNK
     Dates: end: 20070101
  3. THALOMID [Concomitant]
     Dosage: UNK
     Dates: start: 19990801
  4. CHEMOTHERAPEUTICS NOS [Concomitant]
  5. RADIATION THERAPY [Concomitant]
  6. LOTREL [Concomitant]
     Dosage: UNK
  7. ZOLOFT [Concomitant]
     Dosage: 100 MG, QD
  8. DITROPAN XL [Concomitant]
     Dosage: UNK
  9. PREVACID [Concomitant]
  10. IRON [Concomitant]
  11. ALLOPURINOL [Concomitant]
  12. RENAGEL [Concomitant]
  13. AMIODARONE HCL [Concomitant]
  14. SIMVASTATIN [Concomitant]
  15. SENSIPAR [Concomitant]
  16. COUMADIN [Concomitant]
  17. LEXAPRO [Concomitant]
  18. ACETAMINOPHEN [Concomitant]
  19. LOPERAMIDE [Concomitant]
  20. ZOFRAN [Concomitant]
  21. EPOGEN [Concomitant]
  22. AUGMENTIN '125' [Concomitant]
  23. AMOXICILLIN [Concomitant]
  24. VITAMIN E [Concomitant]
  25. PENTOXIFYLLINE [Concomitant]
  26. THALIDOMIDE [Concomitant]
  27. CLONIDINE [Concomitant]
     Dosage: UNK
  28. NORVASC [Concomitant]
  29. PREMARIN [Concomitant]
     Dosage: UNK
  30. AMBIEN [Concomitant]
     Dosage: UNK
  31. LIDOCAINE HYDROCHLORIDE IN PLASTIC CONTAINER [Concomitant]
     Dosage: UNK
  32. FLORINEF [Concomitant]
     Dosage: UNK
  33. TYLENOL [Concomitant]
     Dosage: UNK
  34. TRENTAL ^ALBERT-ROUSSEL^ [Concomitant]
     Dosage: UNK
  35. DECADRON [Concomitant]
  36. MACROBID [Concomitant]
  37. MIDODRINE HYDROCHLORIDE [Concomitant]
  38. ZOCOR [Concomitant]
  39. ONDANSETRON [Concomitant]
  40. TYLENOL (CAPLET) [Concomitant]
  41. TYLENOL PM, EXTRA STRENGTH [Concomitant]
  42. FLUDROCORTISONE ACETATE [Concomitant]
  43. REVLIMID [Concomitant]
  44. HYDROCODONE [Concomitant]
  45. CHLORHEXIDINE GLUCONATE [Concomitant]
  46. CIPROFLOXACIN [Concomitant]
  47. LEVAQUIN [Concomitant]
  48. VITAMIN D [Concomitant]
  49. AZITHROMYCIN [Concomitant]
  50. CEPHALEXIN [Concomitant]
  51. OXYCODONE [Concomitant]
  52. FLUTAMIDE [Concomitant]

REACTIONS (81)
  - ABASIA [None]
  - ABDOMINAL PAIN [None]
  - ABSCESS DRAINAGE [None]
  - ADRENAL NEOPLASM [None]
  - ANAEMIA [None]
  - ANEURYSM REPAIR [None]
  - ANKLE FRACTURE [None]
  - ANXIETY [None]
  - ARTERIOVENOUS FISTULA OPERATION [None]
  - ARTHRALGIA [None]
  - ASTHENIA [None]
  - ATAXIA [None]
  - ATRIAL FIBRILLATION [None]
  - BLEPHARITIS [None]
  - BONE DISORDER [None]
  - BONE NEOPLASM [None]
  - COLON ADENOMA [None]
  - DEAFNESS [None]
  - DECREASED APPETITE [None]
  - DEFORMITY [None]
  - DEPRESSION [None]
  - DIALYSIS [None]
  - DIARRHOEA [None]
  - DISABILITY [None]
  - DIVERTICULUM INTESTINAL [None]
  - DYSPEPSIA [None]
  - DYSPHAGIA [None]
  - DYSPNOEA [None]
  - DYSPNOEA EXERTIONAL [None]
  - EAR PAIN [None]
  - ENDODONTIC PROCEDURE [None]
  - FALL [None]
  - FISTULA [None]
  - FOCAL SEGMENTAL GLOMERULOSCLEROSIS [None]
  - GAIT DISTURBANCE [None]
  - GASTROOESOPHAGEAL REFLUX DISEASE [None]
  - GINGIVAL DISORDER [None]
  - HAEMORRHAGE [None]
  - HAEMORRHOIDS [None]
  - HEPATIC ENZYME INCREASED [None]
  - HEPATIC MASS [None]
  - HYPOAESTHESIA [None]
  - INFECTION [None]
  - INJURY [None]
  - IRRITABLE BOWEL SYNDROME [None]
  - JAW FRACTURE [None]
  - MOBILITY DECREASED [None]
  - MULTIPLE MYELOMA [None]
  - MUSCULAR WEAKNESS [None]
  - MYRINGOTOMY [None]
  - NAUSEA [None]
  - NECK PAIN [None]
  - NEUROPATHY PERIPHERAL [None]
  - NIGHT SWEATS [None]
  - ODYNOPHAGIA [None]
  - OEDEMA PERIPHERAL [None]
  - OSTEOARTHRITIS [None]
  - OSTEONECROSIS OF JAW [None]
  - OTITIS MEDIA CHRONIC [None]
  - PAIN [None]
  - PAIN IN EXTREMITY [None]
  - PARAESTHESIA [None]
  - PULMONARY FUNCTION TEST DECREASED [None]
  - RECTAL HAEMORRHAGE [None]
  - RENAL FAILURE CHRONIC [None]
  - SENSORY NEUROPATHY HEREDITARY [None]
  - SKIN EROSION [None]
  - SLEEP APNOEA SYNDROME [None]
  - SMALL INTESTINAL OBSTRUCTION [None]
  - SMALL INTESTINE OPERATION [None]
  - SPINAL LAMINECTOMY [None]
  - SPINAL OPERATION [None]
  - SUBCUTANEOUS ABSCESS [None]
  - THERAPEUTIC AGENT TOXICITY [None]
  - TOOTH ABSCESS [None]
  - TOOTH EXTRACTION [None]
  - URGE INCONTINENCE [None]
  - URINARY TRACT INFECTION [None]
  - VASCULAR PSEUDOANEURYSM [None]
  - VERTIGO [None]
  - WEIGHT DECREASED [None]
